FAERS Safety Report 18030184 (Version 1)
Quarter: 2020Q3

REPORT INFORMATION
  Report Type: Spontaneous
  Country: US (occurrence: US)
  Receive Date: 20200715
  Receipt Date: 20200715
  Transmission Date: 20201103
  Serious: Yes (Hospitalization)
  Sender: FDA-Public Use
  Company Number: None

PATIENT
  Age: 40 Year
  Sex: Male
  Weight: 96.4 kg

DRUGS (3)
  1. CABAZITAXEL [Suspect]
     Active Substance: CABAZITAXEL
     Dates: end: 20200630
  2. ABIRATEROENE ACETATE [Suspect]
     Active Substance: ABIRATERONE ACETATE
     Dates: end: 20200709
  3. PREDNISONE. [Suspect]
     Active Substance: PREDNISONE
     Dates: end: 20200709

REACTIONS (8)
  - Fatigue [None]
  - Asthenia [None]
  - Dyspnoea [None]
  - Blood creatinine increased [None]
  - Cough [None]
  - Hypotension [None]
  - Pyrexia [None]
  - Confusional state [None]

NARRATIVE: CASE EVENT DATE: 20200709
